FAERS Safety Report 5584178-2 (Version None)
Quarter: 2008Q1

REPORT INFORMATION
  Report Type: 
  Country: None (occurrence: None)
  Receive Date: 20080103
  Receipt Date: 20071219
  Transmission Date: 20080703
  Serious: Yes (Other)
  Sender: FDA-Public Use
  Company Number: US021978

PATIENT
  Age: 68 Year
  Sex: Female
  Weight: 80.7403 kg

DRUGS (10)
  1. PROVIGIL [Suspect]
     Indication: SLEEP APNOEA SYNDROME
     Dosage: 200 MG QAM ORAL
     Route: 048
     Dates: start: 20071213
  2. ORAJEL [Suspect]
     Indication: STOMATITIS
     Dosage: ORAL
     Route: 048
     Dates: start: 20071210, end: 20071214
  3. ORAJEL [Suspect]
     Indication: TONGUE ULCERATION
     Dosage: ORAL
     Route: 048
     Dates: start: 20071210, end: 20071214
  4. NEXIUM [Concomitant]
  5. FLUOXETINE HCL [Concomitant]
  6. LIPITOR [Concomitant]
  7. NASACORT [Concomitant]
  8. OXYTROL [Concomitant]
  9. VITAMIN E [Concomitant]
  10. VITAMIN TAB [Concomitant]

REACTIONS (2)
  - CONDITION AGGRAVATED [None]
  - TARDIVE DYSKINESIA [None]
